FAERS Safety Report 5486101-8 (Version None)
Quarter: 2007Q4

REPORT INFORMATION
  Report Type: 
  Country: None (occurrence: None)
  Receive Date: 20071015
  Receipt Date: 20071003
  Transmission Date: 20080405
  Serious: Yes (Other)
  Sender: FDA-Public Use
  Company Number: IE-PFIZER INC-2007083526

PATIENT
  Age: 68 Year
  Sex: Female

DRUGS (7)
  1. ZYVOX [Suspect]
     Route: 042
     Dates: start: 20070809, end: 20070811
  2. LOFEPRAMINE [Concomitant]
  3. PIPERACILLIN [Concomitant]
  4. OLANZAPINE [Concomitant]
  5. DIAZEPAM [Concomitant]
  6. LANSOPRAZOLE [Concomitant]
  7. MORPHINE HCL ELIXIR [Concomitant]

REACTIONS (1)
  - HEPATITIS [None]
